FAERS Safety Report 10721887 (Version 1)
Quarter: 2020Q3

REPORT INFORMATION
  Report Type: Spontaneous
  Country: US (occurrence: US)
  Receive Date: 20150120
  Receipt Date: 20150120
  Transmission Date: 20201104
  Serious: Yes (Death)
  Sender: FDA-Public Use
  Company Number: US-CIPLA LTD.-2015US00363

PATIENT

DRUGS (3)
  1. IRINOTECAN [Suspect]
     Active Substance: IRINOTECAN
     Indication: COLORECTAL CANCER
     Dosage: 180 MG/M2, ON DAYS 1 AND 15 OF EACH CYCLE
     Route: 042
  2. SELUMETINIB. [Suspect]
     Active Substance: SELUMETINIB
     Dosage: 75 MG, BID
     Route: 048
  3. SELUMETINIB. [Suspect]
     Active Substance: SELUMETINIB
     Indication: COLORECTAL CANCER
     Dosage: 50 MG, BID
     Route: 048

REACTIONS (1)
  - Death [Fatal]
